FAERS Safety Report 6738965-5 (Version None)
Quarter: 2010Q2

REPORT INFORMATION
  Report Type: 
  Country: None (occurrence: None)
  Receive Date: 20100521
  Receipt Date: 20100507
  Transmission Date: 20101027
  Serious: Yes (Hospitalization, Other)
  Sender: FDA-Public Use
  Company Number: AUR-APL-2010-00759

PATIENT
  Age: 90 Year
  Sex: Female
  Weight: 40.8237 kg

DRUGS (8)
  1. METOPROLOL                  25MG TABLETS (GREENSTONE) [Suspect]
     Indication: ATRIAL FIBRILLATION
     Dosage: 12.5MG, BID
     Dates: start: 20080101
  2. ATORVASTATIN CALCIUM [Suspect]
     Indication: BLOOD CHOLESTEROL ABNORMAL
     Dosage: 5MG, DAILY
     Dates: start: 20040101
  3. LEVOTHYROXINE SODIUM [Concomitant]
  4. DIGOXIN [Concomitant]
  5. WARFARIN SODIUM [Concomitant]
  6. TOVIAZ [Concomitant]
  7. ZONISAMIDE [Concomitant]
  8. ISOSORBIDE [Concomitant]

REACTIONS (5)
  - CEREBROVASCULAR ACCIDENT [None]
  - CONVULSION [None]
  - FALL [None]
  - GAIT DISTURBANCE [None]
  - HIP FRACTURE [None]
